FAERS Safety Report 15361271 (Version 1)
Quarter: 2018Q3

REPORT INFORMATION
  Report Type: Spontaneous
  Country: IT (occurrence: IT)
  Receive Date: 20180907
  Receipt Date: 20180907
  Transmission Date: 20181010
  Serious: Yes (Other)
  Sender: FDA-Public Use
  Company Number: IT-ALVOGEN-2018-ALVOGEN-097268

PATIENT
  Age: 3 Year
  Sex: Male

DRUGS (2)
  1. BUDESONIDE. [Suspect]
     Active Substance: BUDESONIDE
     Indication: ADENOIDAL HYPERTROPHY
  2. BUDESONIDE. [Suspect]
     Active Substance: BUDESONIDE
     Indication: ADENOIDAL HYPERTROPHY

REACTIONS (1)
  - Erythema multiforme [Unknown]
